FAERS Safety Report 8691410 (Version 6)
Quarter: 2013Q4

REPORT INFORMATION
  Report Type: Report from Study
  Country: JP (occurrence: JP)
  Receive Date: 20120730
  Receipt Date: 20131127
  Transmission Date: 20140711
  Serious: Yes (Hospitalization, Other)
  Sender: FDA-Public Use
  Company Number: JP-VERTEX PHARMACEUTICAL INC.-AE-2012-010834

PATIENT
  Age: 40 Year
  Sex: Male

DRUGS (18)
  1. VX-950 (TELAPREVIR) [Suspect]
     Indication: CHRONIC HEPATITIS C
     Dosage: 2000 MG, QD
     Route: 048
     Dates: start: 20120508, end: 20120627
  2. REBETOL [Suspect]
     Indication: CHRONIC HEPATITIS C
     Dosage: 800 MG, QD
     Route: 048
     Dates: start: 20120508, end: 20120517
  3. REBETOL [Suspect]
     Dosage: 600 MG, QD
     Route: 048
     Dates: start: 20120518, end: 20120528
  4. REBETOL [Suspect]
     Dosage: 400 MG, QD
     Route: 048
     Dates: start: 20120529, end: 20120618
  5. REBETOL [Suspect]
     Dosage: 200 MG, QD
     Route: 048
     Dates: start: 20120619, end: 20120627
  6. REBETOL [Suspect]
     Dosage: 400 MG, QD
     Route: 048
     Dates: start: 20120704, end: 20120806
  7. REBETOL [Suspect]
     Dosage: 200 MG, QD
     Route: 048
     Dates: start: 20120904, end: 20120917
  8. REBETOL [Suspect]
     Dosage: 400 MG, QD
     Route: 048
     Dates: start: 20120918
  9. PEGINTERFERON ALFA-2B [Suspect]
     Indication: CHRONIC HEPATITIS C
     Dosage: 1.5 ?G/KG, QW
     Route: 058
     Dates: start: 20120508, end: 20120627
  10. PEGINTERFERON ALFA-2B [Suspect]
     Dosage: 1.5 ?G/KG, QW
     Route: 058
     Dates: start: 20120704, end: 20121002
  11. GASMOTIN [Concomitant]
     Dosage: 15 MG, QD
     Route: 048
  12. CONSTAN [Concomitant]
     Dosage: 1.2 MG, QD
     Route: 048
  13. MEDETAX [Concomitant]
     Dosage: 2 MG, QD
     Route: 048
  14. SEDEKOPAN [Concomitant]
     Dosage: 1.5 MG, QD
     Route: 048
     Dates: start: 20120614
  15. PARIET [Concomitant]
     Dosage: 10 MG, QD
     Route: 048
  16. ALLOPURINOL [Concomitant]
     Dosage: 300 MG, QD
     Route: 048
     Dates: end: 20120706
  17. ALLOPURINOL [Concomitant]
     Dosage: 200 MG, QD
     Route: 048
     Dates: start: 20120707, end: 20120821
  18. PERORIC [Concomitant]
     Dosage: 30 MG, QD
     Route: 048
     Dates: end: 20121022

REACTIONS (4)
  - Cholecystitis acute [Recovered/Resolved]
  - White blood cell count decreased [Recovered/Resolved]
  - Haemoglobin decreased [Recovered/Resolved]
  - Anaemia [Recovered/Resolved]
